FAERS Safety Report 9397140 (Version 2)
Quarter: 2013Q3

REPORT INFORMATION
  Report Type: Spontaneous
  Country: KR (occurrence: KR)
  Receive Date: 20130712
  Receipt Date: 20130717
  Transmission Date: 20140515
  Serious: Yes (Other)
  Sender: FDA-Public Use
  Company Number: KR-ABBOTT-13X-090-1117874-00

PATIENT
  Age: 6 Month
  Sex: Female

DRUGS (3)
  1. VALPROATE SODIUM [Suspect]
     Indication: CONVULSION
  2. DIAZEPAM [Concomitant]
     Indication: CONVULSION
     Route: 042
  3. LORAZEPAM [Concomitant]
     Indication: CONVULSION
     Route: 042

REACTIONS (10)
  - Hypogammaglobulinaemia [Not Recovered/Not Resolved]
  - Blood immunoglobulin G decreased [Unknown]
  - Blood immunoglobulin A decreased [Unknown]
  - Blood immunoglobulin E decreased [Unknown]
  - Blood immunoglobulin M decreased [Unknown]
  - Pancytopenia [Recovered/Resolved]
  - White blood cell count decreased [Unknown]
  - Haemoglobin decreased [Unknown]
  - Platelet count decreased [Unknown]
  - Petechiae [Unknown]
